FAERS Safety Report 18168606 (Version 3)
Quarter: 2020Q3

REPORT INFORMATION
  Report Type: Spontaneous
  Country: US (occurrence: US)
  Receive Date: 20200819
  Receipt Date: 20200909
  Transmission Date: 20201103
  Serious: Yes (Other)
  Sender: FDA-Public Use
  Company Number: US-MACLEODS PHARMACEUTICALS US LTD-MAC2020027715

PATIENT

DRUGS (9)
  1. PRAMIPEXOLE. [Suspect]
     Active Substance: PRAMIPEXOLE
     Indication: PARKINSONISM
     Dosage: 0.5 MG, MIRAPEX (PRAMIPEXOLE), TID, EVERY 8 HOUR
     Route: 048
  2. CARBIDOPA/LEVODOPA TABLETS [Suspect]
     Active Substance: CARBIDOPA\LEVODOPA
     Indication: SUICIDE ATTEMPT
     Dosage: 1.5 DOSAGE FORM, TID, EVERY 8 HOUR (CARBIDOPA 25 MG?LEVODOPA 100MG)
     Route: 048
  3. PRAMIPEXOLE. [Suspect]
     Active Substance: PRAMIPEXOLE
     Dosage: 1 MILLIGRAM, TID, EVERY 8 HOUR
     Route: 048
  4. TRIHEXYPHENIDYL [Concomitant]
     Active Substance: TRIHEXYPHENIDYL
     Indication: PARKINSONISM
     Dosage: 2 MILLIGRAM, TID, EVERY 8 HOUR
     Route: 065
  5. CARBIDOPA/LEVODOPA TABLETS [Suspect]
     Active Substance: CARBIDOPA\LEVODOPA
     Dosage: 20?30 TABLETS
     Route: 048
  6. DESMOPRESSIN [Concomitant]
     Active Substance: DESMOPRESSIN
     Indication: EPISTAXIS
     Dosage: UNK, EVERY
     Route: 065
  7. PRAMIPEXOLE. [Suspect]
     Active Substance: PRAMIPEXOLE
     Dosage: 1.5 MILLIGRAM, QD
     Route: 048
  8. CARBIDOPA/LEVODOPA TABLETS [Suspect]
     Active Substance: CARBIDOPA\LEVODOPA
     Indication: PARKINSONISM
     Dosage: 1 DOSAGE FORM, TID, EVERY 8 HOUR (CARBIDOPA 25 MG?LEVODOPA 100MG)
     Route: 048
  9. AMANTADINE. [Concomitant]
     Active Substance: AMANTADINE HYDROCHLORIDE
     Indication: PARKINSONISM
     Dosage: 100 MILLIGRAM, BID
     Route: 065

REACTIONS (4)
  - Sexually inappropriate behaviour [Recovering/Resolving]
  - Compulsive shopping [Recovering/Resolving]
  - Intentional overdose [Unknown]
  - Drug ineffective [Unknown]
